FAERS Safety Report 9916328 (Version 4)
Quarter: 2014Q2

REPORT INFORMATION
  Report Type: Spontaneous
  Country: IT (occurrence: None)
  Receive Date: 20140219
  Receipt Date: 20140522
  Transmission Date: 20141212
  Serious: Yes (Hospitalization, Other)
  Sender: FDA-Public Use
  Company Number: AUR-APL-2014-01714

PATIENT
  Age: 80 Year
  Sex: Male

DRUGS (9)
  1. METFORMIN (METFORMIN) [Suspect]
     Indication: DIABETES MELLITUS
     Dosage: 1500 MG, 1 D
     Route: 048
     Dates: start: 20120101, end: 20140112
  2. HUMALOG (INSULIN LISPRO) [Suspect]
     Indication: DIABETES MELLITUS
     Dosage: 30 IUT, 1 D
     Route: 058
     Dates: start: 20120101, end: 20140112
  3. HUMULIN [Suspect]
     Indication: DIABETES MELLITUS
     Dosage: 10 IUT, 1 D
     Route: 058
     Dates: start: 20120101, end: 20140112
  4. TRIATEC (PANADEINE CO) [Concomitant]
  5. ZYLORIC (ALLOPURINOL) [Concomitant]
  6. COAPROVEL (KARVEA HCT) [Concomitant]
  7. CARDURA (DOXAZOSIN MESILATE) [Concomitant]
  8. SEROQUEL (QUETIAPINE FUMARATE) [Concomitant]
  9. ACETYLSALICYLIC ACID (ACETYLSALICYLIC ACID) [Concomitant]

REACTIONS (3)
  - Hypoglycaemic coma [None]
  - Drug interaction [None]
  - Glycosylated haemoglobin increased [None]
